FAERS Safety Report 13794785 (Version 1)
Quarter: 2017Q3

REPORT INFORMATION
  Report Type: Report from Study
  Country: JP (occurrence: JP)
  Receive Date: 20170726
  Receipt Date: 20170726
  Transmission Date: 20171127
  Serious: Yes (Hospitalization)
  Sender: FDA-Public Use
  Company Number: JP-DSJP-DSJ-2017-124880

PATIENT

DRUGS (16)
  1. EDOXABAN [Suspect]
     Active Substance: EDOXABAN TOSYLATE
     Indication: ATRIAL FIBRILLATION
     Dosage: 30 MG, QD
     Route: 048
     Dates: start: 20160709, end: 20170301
  2. EDOXABAN [Suspect]
     Active Substance: EDOXABAN TOSYLATE
     Dosage: 30 MG, QD
     Route: 048
     Dates: start: 20170308
  3. MYOCOR [Concomitant]
     Active Substance: NITROGLYCERIN
     Dosage: 25MG/DAY
     Route: 042
     Dates: start: 20160708, end: 20160708
  4. MICARDIS [Concomitant]
     Active Substance: TELMISARTAN
     Dosage: 40MG/DAY
     Route: 048
     Dates: end: 20170705
  5. VASOLAN                            /00014302/ [Concomitant]
     Active Substance: VERAPAMIL HYDROCHLORIDE
     Indication: ATRIAL FIBRILLATION
     Dosage: 40MG/DAY
     Route: 048
     Dates: start: 20160707
  6. XARELTO [Concomitant]
     Active Substance: RIVAROXABAN
     Dosage: 15MG/DAY
     Route: 048
     Dates: start: 20160707, end: 20160708
  7. DORNER [Suspect]
     Active Substance: BERAPROST SODIUM
     Dosage: 40MG/DAY
     Route: 048
     Dates: start: 20170216, end: 20170219
  8. AMLODIPINE                         /00972402/ [Concomitant]
     Active Substance: AMLODIPINE BESYLATE
     Dosage: 5MG/DAY
     Route: 048
     Dates: end: 20160907
  9. MAINTATE [Concomitant]
     Active Substance: BISOPROLOL FUMARATE
     Indication: ATRIAL FIBRILLATION
     Dosage: 1.25MG/DAY
     Route: 048
     Dates: start: 20160715
  10. SAMSCA [Concomitant]
     Active Substance: TOLVAPTAN
     Dosage: 3.75MG/DAY
     Route: 048
     Dates: start: 20170209
  11. LASIX [Concomitant]
     Active Substance: FUROSEMIDE
     Dosage: 40MG/DAY
     Route: 042
     Dates: start: 20160709, end: 20160710
  12. HOKUNALIN                          /00654901/ [Concomitant]
     Active Substance: TULOBUTEROL
     Dosage: 1MG/DAY
     Route: 062
  13. SPIRIVA [Concomitant]
     Active Substance: TIOTROPIUM BROMIDE MONOHYDRATE
     Dosage: 18UG/DAY
     Route: 055
  14. SELARA [Concomitant]
     Active Substance: EPLERENONE
     Dosage: 50MG/DAY
     Route: 048
     Dates: start: 20160713
  15. ALDACTONE [Concomitant]
     Active Substance: SPIRONOLACTONE
     Dosage: 25MG/DAY
     Route: 048
     Dates: start: 20160712, end: 20160714
  16. LUPRAC [Concomitant]
     Active Substance: TORSEMIDE
     Dosage: 40MG/DAY
     Route: 048
     Dates: start: 20160928, end: 20170705

REACTIONS (2)
  - Haematuria [Recovered/Resolved]
  - Cardiac failure [Recovered/Resolved]

NARRATIVE: CASE EVENT DATE: 20170208
